FAERS Safety Report 10691734 (Version 1)
Quarter: 2015Q1

REPORT INFORMATION
  Report Type: Spontaneous
  Country: US (occurrence: US)
  Receive Date: 20150105
  Receipt Date: 20150105
  Transmission Date: 20150720
  Serious: No
  Sender: FDA-Public Use
  Company Number: US-GLAXOSMITHKLINE-A1078253A

PATIENT

DRUGS (5)
  1. AMLODIPINE [Concomitant]
     Active Substance: AMLODIPINE BESYLATE
  2. LOVAZA [Suspect]
     Active Substance: OMEGA-3-ACID ETHYL ESTERS
     Indication: BLOOD TRIGLYCERIDES INCREASED
     Route: 048
     Dates: start: 201312
  3. BYSTOLIC [Concomitant]
     Active Substance: NEBIVOLOL HYDROCHLORIDE
  4. HYDROCHLOROTHIAZIDE. [Concomitant]
     Active Substance: HYDROCHLOROTHIAZIDE
  5. PLAVIX [Concomitant]
     Active Substance: CLOPIDOGREL BISULFATE

REACTIONS (1)
  - Eructation [Not Recovered/Not Resolved]

NARRATIVE: CASE EVENT DATE: 201406
